FAERS Safety Report 9207979 (Version 3)
Quarter: 2014Q2

REPORT INFORMATION
  Report Type: Report from Study
  Country: US (occurrence: US)
  Receive Date: 20130403
  Receipt Date: 20140630
  Transmission Date: 20141212
  Serious: Yes (Hospitalization, Other)
  Sender: FDA-Public Use
  Company Number: US-ALEXION-A201300579

PATIENT
  Sex: 0

DRUGS (1)
  1. SOLIRIS [Suspect]
     Indication: HAEMOLYTIC URAEMIC SYNDROME
     Dosage: UNK
     Route: 042

REACTIONS (11)
  - Fluid overload [Unknown]
  - Respiratory disorder [Unknown]
  - Plasmapheresis [Unknown]
  - Renal haemorrhage [Unknown]
  - Pneumonia [Unknown]
  - Thrombotic microangiopathy [Unknown]
  - Hypothyroidism [Unknown]
  - Anxiety [Unknown]
  - Depression [Unknown]
  - Gastrooesophageal reflux disease [Unknown]
  - Hypertension [Unknown]
